FAERS Safety Report 6030062-X (Version None)
Quarter: 2009Q1

REPORT INFORMATION
  Report Type: 
  Country: None (occurrence: None)
  Receive Date: 20090105
  Receipt Date: 20090105
  Transmission Date: 20090719
  Serious: No
  Sender: FDA-Public Use
  Company Number: None

PATIENT

DRUGS (1)
  1. LATISSE [Suspect]

REACTIONS (4)
  - EYELASH THICKENING [None]
  - EYELID EROSION [None]
  - EYELID OEDEMA [None]
  - GROWTH OF EYELASHES [None]
